FAERS Safety Report 24451351 (Version 2)
Quarter: 2024Q4

REPORT INFORMATION
  Report Type: Spontaneous
  Country: US (occurrence: US)
  Receive Date: 20241017
  Receipt Date: 20241030
  Transmission Date: 20250115
  Serious: Yes (Death, Hospitalization)
  Sender: TEVA
  Company Number: US-TEVA-VS-3253856

PATIENT
  Age: 23 Year
  Sex: Male

DRUGS (3)
  1. BLEOMYCIN [Suspect]
     Active Substance: BLEOMYCIN SULFATE
     Indication: Testicular germ cell tumour mixed
     Route: 065
  2. CISPLATIN [Concomitant]
     Active Substance: CISPLATIN
     Indication: Testicular germ cell tumour mixed
     Route: 065
  3. ETOPOSIDE [Concomitant]
     Active Substance: ETOPOSIDE
     Indication: Testicular germ cell tumour mixed
     Route: 065

REACTIONS (14)
  - Chest pain [Fatal]
  - Pneumonitis [Fatal]
  - Hyperoxia [Fatal]
  - Eosinophilic pneumonia [Fatal]
  - Lung consolidation [Fatal]
  - Lung opacity [Fatal]
  - Subcutaneous emphysema [Fatal]
  - Bronchiectasis [Fatal]
  - Pneumomediastinum [Fatal]
  - Acute respiratory failure [Fatal]
  - Pulmonary fibrosis [Fatal]
  - Lung disorder [Fatal]
  - Toxicity to various agents [Fatal]
  - Laryngospasm [Fatal]
